FAERS Safety Report 7561264-9 (Version None)
Quarter: 2011Q2

REPORT INFORMATION
  Report Type: 
  Country: None (occurrence: None)
  Receive Date: 20110621
  Receipt Date: 20110216
  Transmission Date: 20111010
  Serious: No
  Sender: FDA-Public Use
  Company Number: US-ASTRAZENECA-2011SE08915

PATIENT
  Age: 69 Year
  Sex: Male

DRUGS (3)
  1. PULMICORT [Suspect]
     Indication: EMPHYSEMA
     Dosage: 0.5MG/2 ML
     Route: 055
     Dates: start: 19900101
  2. REGLAN [Concomitant]
  3. DUONEB [Concomitant]

REACTIONS (3)
  - FEELING ABNORMAL [None]
  - PSYCHOMOTOR HYPERACTIVITY [None]
  - CIRCUMSTANCE OR INFORMATION CAPABLE OF LEADING TO MEDICATION ERROR [None]
